FAERS Safety Report 6278216-1 (Version None)
Quarter: 2009Q3

REPORT INFORMATION
  Report Type: 
  Country: None (occurrence: None)
  Receive Date: 20090722
  Receipt Date: 20090709
  Transmission Date: 20100115
  Serious: Yes (Other)
  Sender: FDA-Public Use
  Company Number: GB-MYLANLABS-2009S1012711

PATIENT
  Age: 32 Year
  Sex: Male
  Weight: 137 kg

DRUGS (2)
  1. ALLOPURINOL [Suspect]
     Indication: GOUT
     Route: 065
  2. ALLOPURINOL [Suspect]
     Route: 065

REACTIONS (2)
  - NEPHROLITHIASIS [None]
  - WEIGHT INCREASED [None]
